FAERS Safety Report 4592565-4 (Version None)
Quarter: 2005Q1

REPORT INFORMATION
  Report Type: 
  Country: None (occurrence: None)
  Receive Date: 20050222
  Receipt Date: 20050207
  Transmission Date: 20050727
  Serious: Yes (Hospitalization)
  Sender: FDA-Public Use
  Company Number: 2005UW00634

PATIENT
  Age: 71 Year
  Sex: Male

DRUGS (4)
  1. CRESTOR [Suspect]
     Indication: CARDIAC DISORDER
     Dosage: 10 MG DAILY PO
     Route: 048
     Dates: start: 20041101, end: 20041211
  2. ATENOLOL [Concomitant]
  3. PLAVIX [Concomitant]
  4. NITRO-DUR [Concomitant]

REACTIONS (4)
  - BLOOD CREATINE PHOSPHOKINASE INCREASED [None]
  - CORONARY ARTERY DISEASE [None]
  - DIFFICULTY IN WALKING [None]
  - MYALGIA [None]
